FAERS Safety Report 5151020-3 (Version None)
Quarter: 2006Q4

REPORT INFORMATION
  Report Type: 
  Country: None (occurrence: None)
  Receive Date: 20061113
  Receipt Date: 20061113
  Transmission Date: 20070319
  Serious: Yes (Other)
  Sender: FDA-Public Use
  Company Number: None

PATIENT
  Sex: Female
  Weight: 59.3 kg

DRUGS (6)
  1. CEFAZOLIN [Suspect]
     Indication: WOUND INFECTION
     Dosage: 2GM EVERY 8 HOURS IV BOLUS
     Route: 040
     Dates: start: 20061102, end: 20061103
  2. CEFAZOLIN [Suspect]
     Indication: WOUND INFECTION
     Dosage: 2GM EVERY 8 HOURS IV BOLUS
     Route: 040
     Dates: start: 20061102, end: 20061103
  3. COUMADIN [Concomitant]
  4. PAXIL [Concomitant]
  5. TOPROL-XL [Concomitant]
  6. TYLENOL [Concomitant]

REACTIONS (1)
  - DIARRHOEA [None]
